FAERS Safety Report 9631241 (Version 3)
Quarter: 2013Q4

REPORT INFORMATION
  Report Type: Spontaneous
  Country: IE (occurrence: IE)
  Receive Date: 20131018
  Receipt Date: 20131223
  Transmission Date: 20140711
  Serious: Yes (Other)
  Sender: FDA-Public Use
  Company Number: PHFR2013IE005441

PATIENT
  Sex: Male

DRUGS (6)
  1. CLOZARIL [Suspect]
     Indication: SCHIZOPHRENIA, PARANOID TYPE
     Dosage: UNK
     Route: 048
     Dates: start: 20130910
  2. CLOZARIL [Suspect]
     Dosage: 200 MG, UNK
     Route: 048
  3. CLOZARIL [Suspect]
     Dosage: 150 MG, UNK
     Route: 048
  4. SERTRALINE [Concomitant]
     Indication: DEPRESSION
     Dosage: UNK
     Route: 048
  5. LANSOPRAZOLE [Concomitant]
     Indication: GASTRITIS
     Dosage: 30 MG, UNK
     Route: 048
  6. HYOSCINE [Concomitant]
     Indication: DROOLING
     Dosage: 300 MG, BID
     Route: 048

REACTIONS (3)
  - Depressed mood [Recovering/Resolving]
  - Suicidal behaviour [Recovering/Resolving]
  - Malaise [Unknown]
